FAERS Safety Report 15017041 (Version 3)
Quarter: 2021Q2

REPORT INFORMATION
  Report Type: Spontaneous
  Country: FR (occurrence: FR)
  Receive Date: 20180615
  Receipt Date: 20210409
  Transmission Date: 20210716
  Serious: Yes (Death, Other)
  Sender: FDA-Public Use
  Company Number: FR-BRISTOL-MYERS SQUIBB COMPANY-BMS-2018-051462

PATIENT
  Age: 80 Year
  Sex: Male
  Weight: 89 kg

DRUGS (10)
  1. GENTAMICINE PANPHARMA [Suspect]
     Active Substance: GENTAMICIN
     Indication: INFECTION
     Dosage: 5 MILLIGRAM/KILOGRAM
     Route: 042
     Dates: start: 20180228, end: 20180301
  2. COUMADINE [Suspect]
     Active Substance: WARFARIN SODIUM
     Indication: ATRIAL FIBRILLATION
     Dosage: EN FONCTION INR
     Route: 048
     Dates: start: 20180317
  3. ALLOPURINOL ARROW [Suspect]
     Active Substance: ALLOPURINOL
     Indication: INFECTION
     Dosage: 100 MILLIGRAM, QD
     Route: 048
     Dates: start: 20180303
  4. PIPERACILLINE / TAZOBACTAM MYLAN [Suspect]
     Active Substance: PIPERACILLIN SODIUM\TAZOBACTAM SODIUM
     Indication: INFECTION
     Dosage: 4 G LE MATIN
     Route: 042
     Dates: start: 20180228, end: 20180301
  5. MAG 2 [MAGNESIUM CARBONATE] [Suspect]
     Active Substance: MAGNESIUM CARBONATE
     Indication: HYPOMAGNESAEMIA
     Dosage: 1 SACHET IN THE EVENING
     Route: 048
     Dates: start: 20180308
  6. CUBICIN [Suspect]
     Active Substance: DAPTOMYCIN
     Indication: INFECTION
     Dosage: 880 MILLIGRAM, QD
     Route: 042
     Dates: start: 20180228, end: 20180303
  7. ESIDREX [Suspect]
     Active Substance: HYDROCHLOROTHIAZIDE
     Indication: CARDIAC FAILURE
     Dosage: 12.5 MILLIGRAM, QD
     Route: 048
     Dates: start: 20180317
  8. DOLIPRANE [Suspect]
     Active Substance: ACETAMINOPHEN
     Indication: PAIN
     Dosage: 1 GRAM, PRN
     Route: 048
     Dates: start: 20180305
  9. ORBENINE [Suspect]
     Active Substance: CLOXACILLIN SODIUM
     Indication: INFECTION
     Dosage: 8 GRAM, QD
     Route: 042
     Dates: start: 20180303, end: 20180307
  10. MEROPENEM. [Suspect]
     Active Substance: MEROPENEM
     Indication: INFECTION
     Dosage: 1 GRAM, QD
     Route: 042
     Dates: start: 20180307

REACTIONS (2)
  - Death [Fatal]
  - Rash [Not Recovered/Not Resolved]

NARRATIVE: CASE EVENT DATE: 20180317
